FAERS Safety Report 11034492 (Version 2)
Quarter: 2015Q2

REPORT INFORMATION
  Report Type: Spontaneous
  Country: US (occurrence: US)
  Receive Date: 20150415
  Receipt Date: 20150525
  Transmission Date: 20150821
  Serious: Yes (Other)
  Sender: FDA-Public Use
  Company Number: US-JNJFOC-20131114879

PATIENT
  Age: 59 Year
  Sex: Male
  Weight: 86 kg

DRUGS (13)
  1. PLAVIX [Suspect]
     Active Substance: CLOPIDOGREL BISULFATE
     Indication: PERIPHERAL VASCULAR DISORDER
     Route: 048
     Dates: start: 20130110
  2. PLAVIX [Suspect]
     Active Substance: CLOPIDOGREL BISULFATE
     Indication: CORONARY ARTERY DISEASE
     Route: 048
     Dates: start: 20130110
  3. LIPITOR [Concomitant]
     Active Substance: ATORVASTATIN CALCIUM
     Dosage: AT BEDTIME
     Route: 048
  4. ASPIRIN. [Suspect]
     Active Substance: ASPIRIN
     Indication: PERIPHERAL VASCULAR DISORDER
     Route: 048
  5. DILTIAZEM [Concomitant]
     Active Substance: DILTIAZEM
     Indication: ARRHYTHMIA PROPHYLAXIS
     Route: 048
     Dates: start: 20130110
  6. ALLOPURINOL. [Concomitant]
     Active Substance: ALLOPURINOL
     Route: 048
  7. MULTAQ [Concomitant]
     Active Substance: DRONEDARONE
     Route: 048
  8. XARELTO [Suspect]
     Active Substance: RIVAROXABAN
     Indication: ATRIAL FIBRILLATION
     Route: 048
     Dates: start: 20130110
  9. GLIPIZIDE. [Concomitant]
     Active Substance: GLIPIZIDE
     Dosage: MORNING BEFORE BREAKFAST
     Route: 048
  10. XARELTO [Suspect]
     Active Substance: RIVAROXABAN
     Indication: CEREBROVASCULAR ACCIDENT PROPHYLAXIS
     Route: 048
     Dates: start: 20130110
  11. COLCHICINE. [Concomitant]
     Active Substance: COLCHICINE
     Dosage: MORNING
     Route: 048
  12. LISINOPRIL. [Concomitant]
     Active Substance: LISINOPRIL
     Route: 048
  13. AMBIEN [Concomitant]
     Active Substance: ZOLPIDEM TARTRATE
     Indication: INSOMNIA
     Dosage: AT BEDTIME
     Route: 048

REACTIONS (2)
  - Haematochezia [Recovered/Resolved]
  - Epistaxis [Recovered/Resolved]

NARRATIVE: CASE EVENT DATE: 20130118
